FAERS Safety Report 5127325-9 (Version None)
Quarter: 2006Q4

REPORT INFORMATION
  Report Type: 
  Country: None (occurrence: None)
  Receive Date: 20061010
  Receipt Date: 20040302
  Transmission Date: 20070319
  Serious: Yes (Other)
  Sender: FDA-Public Use
  Company Number: CHNY2004SE00486

PATIENT
  Age: 54 Year
  Sex: Female

DRUGS (3)
  1. NICOTINELL LOZENGE (NCH)(NICOTINE) LOZENGE [Suspect]
     Indication: SMOKING CESSATION THERAPY
     Dosage: 1 MG, SUBLINGUAL
     Route: 060
     Dates: start: 20020901, end: 20040301
  2. NICOTINELL GUM (NCH) (NICOTINE) CHEWABLE GUM [Suspect]
     Indication: SMOKING CESSATION THERAPY
     Dosage: CHEWED
  3. OMEGA 3 (FISH OIL) [Concomitant]

REACTIONS (4)
  - DRUG DEPENDENCE [None]
  - INTENTIONAL DRUG MISUSE [None]
  - PYREXIA [None]
  - URTICARIA GENERALISED [None]
